FAERS Safety Report 9676292 (Version 3)
Quarter: 2013Q4

REPORT INFORMATION
  Report Type: Spontaneous
  Country: US (occurrence: US)
  Receive Date: 20131107
  Receipt Date: 20131213
  Transmission Date: 20140711
  Serious: Yes (Death)
  Sender: FDA-Public Use
  Company Number: US-INCYTE CORPORATION-2013IN002614

PATIENT
  Age: 85 Year
  Sex: Male

DRUGS (1)
  1. JAKAFI [Suspect]
     Indication: CHRONIC MYELOID LEUKAEMIA
     Dosage: 15 MG, BID
     Route: 048
     Dates: start: 201308

REACTIONS (1)
  - Pneumonia [Fatal]
